FAERS Safety Report 4988475-0 (Version None)
Quarter: 2006Q2

REPORT INFORMATION
  Report Type: 
  Country: None (occurrence: None)
  Receive Date: 20060426
  Receipt Date: 20060410
  Transmission Date: 20061013
  Serious: Yes (Death, Other)
  Sender: FDA-Public Use
  Company Number: 2006046439

PATIENT
  Age: 30 Year
  Sex: Male

DRUGS (4)
  1. GEODON [Suspect]
     Indication: PSYCHOTIC DISORDER
     Dosage: 160 MG (80 MG, 2 IN 1 D), ORAL
     Route: 048
     Dates: start: 20060227, end: 20060401
  2. LEXAPRO [Suspect]
     Indication: ILL-DEFINED DISORDER
     Dosage: 20 MG (20 MG, 1 IN 1 D),
     Dates: start: 20060227, end: 20060401
  3. LAMICTAL [Concomitant]
  4. SEROQUEL [Concomitant]

REACTIONS (9)
  - ACCIDENTAL OVERDOSE [None]
  - ALCOHOL USE [None]
  - BELLIGERENCE [None]
  - CARDIO-RESPIRATORY ARREST [None]
  - COMPLETED SUICIDE [None]
  - DRUG ABUSER [None]
  - HOSTILITY [None]
  - INSOMNIA [None]
  - PARANOIA [None]
